FAERS Safety Report 13884008 (Version 4)
Quarter: 2017Q3

REPORT INFORMATION
  Report Type: Spontaneous
  Country: CA (occurrence: CA)
  Receive Date: 20170820
  Receipt Date: 20170905
  Transmission Date: 20171127
  Serious: Yes (Life-Threatening, Hospitalization)
  Sender: FDA-Public Use
  Company Number: CA-BEH-2017082983

PATIENT
  Age: 70 Year
  Sex: Female

DRUGS (7)
  1. ALBUREX [Suspect]
     Active Substance: ALBUMIN HUMAN
     Indication: PLASMAPHERESIS
     Dosage: 125 ML, TOT
     Route: 065
     Dates: start: 20170531, end: 20170531
  2. PREDNISONE. [Concomitant]
     Active Substance: PREDNISONE
     Dosage: 80 MG, UNK
     Route: 048
  3. RITUXAN [Concomitant]
     Active Substance: RITUXIMAB
     Route: 065
  4. ALDACTONE [Concomitant]
     Active Substance: SPIRONOLACTONE
     Dosage: 25 MG, UNK
     Route: 048
  5. PLASBUMIN-5 [Suspect]
     Active Substance: ALBUMIN HUMAN
     Dosage: 50 ML, TOT
     Route: 065
     Dates: start: 20170531, end: 20170531
  6. FRAGMIN [Concomitant]
     Active Substance: DALTEPARIN SODIUM
     Route: 065
  7. CALCIUM SANDOZ                     /00060701/ [Suspect]
     Active Substance: CALCIUM GLUCONATE
     Dosage: 500 MG, UNK
     Route: 048

REACTIONS (11)
  - Presyncope [Recovered/Resolved]
  - Altered state of consciousness [Recovered/Resolved]
  - Muscle spasms [Recovered/Resolved]
  - Hypotension [Recovered/Resolved]
  - Shock [Recovered/Resolved]
  - Paranasal sinus mucosal hypertrophy [Unknown]
  - Constipation [Unknown]
  - Hypovolaemia [Recovered/Resolved]
  - Nausea [Recovered/Resolved]
  - Blood pressure systolic decreased [Recovered/Resolved]
  - Vomiting [Recovered/Resolved]

NARRATIVE: CASE EVENT DATE: 20170531
